FAERS Safety Report 23982590 (Version 3)
Quarter: 2024Q3

REPORT INFORMATION
  Report Type: Report from Study
  Country: CA (occurrence: CA)
  Receive Date: 20240617
  Receipt Date: 20240708
  Transmission Date: 20241017
  Serious: Yes (Death, Other)
  Sender: JAZZ
  Company Number: CA-JAZZ PHARMACEUTICALS-2024-CA-009221

PATIENT
  Age: 74 Year
  Sex: Female

DRUGS (3)
  1. LURBINECTEDIN [Suspect]
     Active Substance: LURBINECTEDIN
     Indication: Small cell lung cancer metastatic
     Dosage: UNK
     Dates: start: 20220110, end: 20220718
  2. LURBINECTEDIN [Suspect]
     Active Substance: LURBINECTEDIN
     Dosage: UNK
     Dates: start: 20220830, end: 20221011
  3. LURBINECTEDIN [Suspect]
     Active Substance: LURBINECTEDIN
     Dosage: UNK
     Dates: end: 202209

REACTIONS (1)
  - Lung cancer metastatic [Fatal]
